FAERS Safety Report 7300588-7 (Version None)
Quarter: 2011Q1

REPORT INFORMATION
  Report Type: 
  Country: None (occurrence: None)
  Receive Date: 20110218
  Receipt Date: 20110205
  Transmission Date: 20110831
  Serious: No
  Sender: FDA-Public Use
  Company Number: US-BIOGENIDEC-2011BI004936

PATIENT
  Age: 54 Year
  Sex: Male

DRUGS (2)
  1. AVONEX [Concomitant]
     Indication: MULTIPLE SCLEROSIS
     Route: 030
     Dates: start: 19991230
  2. TYSABRI [Suspect]
     Indication: MULTIPLE SCLEROSIS
     Route: 042
     Dates: start: 20100701

REACTIONS (4)
  - WHITE BLOOD CELL COUNT INCREASED [None]
  - EAR PAIN [None]
  - FATIGUE [None]
  - COORDINATION ABNORMAL [None]
